FAERS Safety Report 4985493-3 (Version None)
Quarter: 2006Q2

REPORT INFORMATION
  Report Type: 
  Country: None (occurrence: None)
  Receive Date: 20060428
  Receipt Date: 20050516
  Transmission Date: 20061013
  Serious: No
  Sender: FDA-Public Use
  Company Number: 2005/04/1991

PATIENT
  Sex: Female

DRUGS (6)
  1. FLOVENT [Suspect]
     Indication: DRUG USE FOR UNKNOWN INDICATION
     Route: 055
  2. ALBUTEROL SULFATE AUTOHALER [Suspect]
     Indication: DRUG USE FOR UNKNOWN INDICATION
     Route: 055
  3. ALBUTEROL SULFATE AUTOHALER [Suspect]
     Route: 055
  4. INTAL [Suspect]
     Indication: DRUG USE FOR UNKNOWN INDICATION
     Route: 065
  5. HEART MEDICATION [Concomitant]
  6. PREDNISONE [Concomitant]
     Indication: MULTIPLE ALLERGIES

REACTIONS (2)
  - CARDIAC VALVE DISEASE [None]
  - PALPITATIONS [None]
